FAERS Safety Report 12856182 (Version 1)
Quarter: 2016Q4

REPORT INFORMATION
  Report Type: Spontaneous
  Country: FR (occurrence: FR)
  Receive Date: 20161018
  Receipt Date: 20161018
  Transmission Date: 20170207
  Serious: Yes (Hospitalization)
  Sender: FDA-Public Use
  Company Number: FR-PFIZER INC-2016469000

PATIENT
  Age: 3 Year
  Sex: Male

DRUGS (8)
  1. KIDROLASE [Suspect]
     Active Substance: ASPARAGINASE
     Dosage: 6000 IU/M2
     Route: 042
     Dates: start: 20160111, end: 20160111
  2. CERUBIDINE [Suspect]
     Active Substance: DAUNORUBICIN HYDROCHLORIDE
     Indication: ACUTE LYMPHOCYTIC LEUKAEMIA
     Dosage: 30 MG/M2, SINGLE
     Route: 042
     Dates: start: 20160106, end: 20160106
  3. VINCRISTINE SULFATE. [Suspect]
     Active Substance: VINCRISTINE SULFATE
     Indication: ACUTE LYMPHOCYTIC LEUKAEMIA
     Dosage: 0.6 MG, SINGLE
     Route: 042
     Dates: start: 20160106, end: 20160106
  4. KIDROLASE [Suspect]
     Active Substance: ASPARAGINASE
     Dosage: 6000 IU/M2
     Route: 042
     Dates: start: 20160113, end: 20160113
  5. VINCRISTINE SULFATE. [Suspect]
     Active Substance: VINCRISTINE SULFATE
     Dosage: 0.6 MG, SINGLE
     Route: 042
     Dates: start: 20160113, end: 20160113
  6. KIDROLASE [Suspect]
     Active Substance: ASPARAGINASE
     Indication: ACUTE LYMPHOCYTIC LEUKAEMIA
     Dosage: 6000 IU/M2 ACCORDING TO THE CYCLE
     Route: 042
     Dates: start: 20160108, end: 20160108
  7. KIDROLASE [Suspect]
     Active Substance: ASPARAGINASE
     Dosage: 6000 IU/M2
     Route: 042
     Dates: start: 20160115, end: 20160115
  8. CERUBIDINE [Suspect]
     Active Substance: DAUNORUBICIN HYDROCHLORIDE
     Dosage: 30 MG/M2, SINGLE
     Route: 042
     Dates: start: 20160113, end: 20160113

REACTIONS (3)
  - Hepatitis [Recovered/Resolved]
  - Hypokalaemia [Recovered/Resolved]
  - Diarrhoea [Recovered/Resolved]

NARRATIVE: CASE EVENT DATE: 20160117
